FAERS Safety Report 12805108 (Version 1)
Quarter: 2016Q4

REPORT INFORMATION
  Report Type: Report from Study
  Country: US (occurrence: US)
  Receive Date: 20161004
  Receipt Date: 20161004
  Transmission Date: 20170207
  Serious: Yes (Hospitalization, Other)
  Sender: FDA-Public Use
  Company Number: US-ROCHE-1032861

PATIENT
  Age: 59 Year
  Sex: Female
  Weight: 44.5 kg

DRUGS (7)
  1. VELIPARIB [Suspect]
     Active Substance: VELIPARIB
     Dosage: 26/SEP/2011, 18/OCT/2011, 13/DEC/2011
     Route: 048
     Dates: start: 20110823
  2. VELIPARIB [Suspect]
     Active Substance: VELIPARIB
     Dosage: STOPPED ON 04/DEC/2012
     Route: 048
     Dates: start: 20111108
  3. CARBOPLATIN. [Suspect]
     Active Substance: CARBOPLATIN
     Indication: FALLOPIAN TUBE CANCER
     Dosage: OVER 30 MINS ON DAY 1, DOSE: 6 AUC
     Route: 042
     Dates: start: 20110505
  4. BEVACIZUMAB [Suspect]
     Active Substance: BEVACIZUMAB
     Indication: FALLOPIAN TUBE CANCER
     Dosage: OVER 30-90 MINS ON DAY 1
     Route: 042
     Dates: start: 20110505
  5. BEVACIZUMAB [Suspect]
     Active Substance: BEVACIZUMAB
     Dosage: 26/SEP/2011, 18/OCT/2011, 08/NOV/2011, 13/DEC/2011, 31/JAN/2012, 21/FEB/2012, 13/MAR/2012, 10/APR/20
     Route: 042
     Dates: start: 20110823, end: 20121204
  6. VELIPARIB [Suspect]
     Active Substance: VELIPARIB
     Indication: FALLOPIAN TUBE CANCER
     Dosage: ON DAYS 1-21
     Route: 048
     Dates: start: 20110802
  7. PACLITAXEL. [Suspect]
     Active Substance: PACLITAXEL
     Indication: FALLOPIAN TUBE CANCER
     Dosage: OVER 1 HR ON DAY 1,8 15
     Route: 042
     Dates: start: 20110505

REACTIONS (12)
  - Tooth infection [Unknown]
  - Anaemia [Unknown]
  - Colitis [Unknown]
  - Pain [Unknown]
  - Anaemia [Recovered/Resolved]
  - Diarrhoea [Unknown]
  - Rectal haemorrhage [Unknown]
  - White blood cell count decreased [Unknown]
  - Abdominal pain [Unknown]
  - Hypertension [Unknown]
  - Platelet count decreased [Unknown]
  - Neutrophil count decreased [Unknown]

NARRATIVE: CASE EVENT DATE: 20111203
